FAERS Safety Report 8823493 (Version 1)
Quarter: 2012Q4

REPORT INFORMATION
  Report Type: 
  Country: JP (occurrence: JP)
  Receive Date: 20121003
  Receipt Date: 20121003
  Transmission Date: 20130627
  Serious: Yes (Hospitalization, Other)
  Sender: FDA-Public Use
  Company Number: JP-B.I. PHARMACEUTICALS,INC./RIDGEFIELD-2012-BP-23482NB

PATIENT
  Age: 66 Year
  Sex: Female

DRUGS (8)
  1. PERSANTIN-L [Suspect]
     Indication: PROTEINURIA
     Dosage: 300 mg
     Route: 048
     Dates: start: 20070307
  2. BREDININ [Suspect]
     Dosage: 100 mg
     Route: 048
     Dates: start: 20070307
  3. PREDONINE [Suspect]
     Dosage: 5 mg
     Route: 048
     Dates: start: 20070307
  4. RENIVACE [Concomitant]
     Dosage: 10 mg
     Route: 048
     Dates: start: 20070307
  5. LIPITOR [Concomitant]
     Dosage: 10 mg
     Route: 048
     Dates: start: 20100709
  6. BASEN OD [Concomitant]
     Dosage: 0.6 mg
     Route: 065
  7. MYSLEE [Concomitant]
     Dosage: 5 mg
     Route: 065
  8. PURSENNID [Concomitant]
     Dosage: 12 mg
     Route: 048

REACTIONS (2)
  - Cerebral infarction [Recovered/Resolved]
  - Cerebral infarction [Not Recovered/Not Resolved]
